FAERS Safety Report 14337646 (Version 1)
Quarter: 2017Q4

REPORT INFORMATION
  Report Type: Spontaneous
  Country: FR (occurrence: FR)
  Receive Date: 20171229
  Receipt Date: 20171229
  Transmission Date: 20180321
  Serious: Yes (Other)
  Sender: FDA-Public Use
  Company Number: FR-MYLANLABS-2017M1082811

PATIENT
  Age: 26 Year
  Sex: Female

DRUGS (3)
  1. TAMSULOSIN [Concomitant]
     Active Substance: TAMSULOSIN
     Indication: MULTIPLE SCLEROSIS
     Route: 065
  2. DAL (DESOGESTREL\ETHINYL ESTRADIOL) [Interacting]
     Active Substance: DESOGESTREL\ETHINYL ESTRADIOL
     Indication: MULTIPLE SCLEROSIS
     Dosage: 10 MG TID
     Route: 065
  3. BACLOFEN. [Suspect]
     Active Substance: BACLOFEN
     Indication: MULTIPLE SCLEROSIS
     Route: 065

REACTIONS (2)
  - Drug interaction [Unknown]
  - Status epilepticus [Unknown]
